FAERS Safety Report 8550921-3 (Version None)
Quarter: 2012Q3

REPORT INFORMATION
  Report Type: 
  Country: None (occurrence: None)
  Receive Date: 20120730
  Receipt Date: 20110812
  Transmission Date: 20120928
  Serious: No
  Sender: FDA-Public Use
  Company Number: US-ALLERGAN-1110884US

PATIENT
  Age: 46 Year
  Sex: Female

DRUGS (2)
  1. UNSPECIFIED CHEMOTHERAPY [Concomitant]
     Indication: PRODUCT USED FOR UNKNOWN INDICATION
     Dosage: UNK
  2. LATISSE [Suspect]
     Indication: CHEMOTHERAPY
     Dosage: 1 GTT, QHS
     Route: 061
     Dates: start: 20110701, end: 20110808

REACTIONS (2)
  - OCULAR HYPERAEMIA [None]
  - LACRIMATION INCREASED [None]
